FAERS Safety Report 19788216 (Version 1)
Quarter: 2021Q3

REPORT INFORMATION
  Report Type: Spontaneous
  Country: CN (occurrence: CN)
  Receive Date: 20210903
  Receipt Date: 20210903
  Transmission Date: 20211014
  Serious: Yes (Other)
  Sender: FDA-Public Use
  Company Number: CN-US-PROVELL PHARMACEUTICALS LLC-9261674

PATIENT
  Weight: 3.53 kg

DRUGS (1)
  1. EUTHYROX [Suspect]
     Active Substance: LEVOTHYROXINE SODIUM
     Indication: HYPOTHYROIDISM
     Route: 064
     Dates: start: 20210610, end: 20210725

REACTIONS (3)
  - Foetal exposure during pregnancy [Recovered/Resolved]
  - Foetal arrhythmia [Recovered/Resolved]
  - Arrhythmia neonatal [Recovered/Resolved]

NARRATIVE: CASE EVENT DATE: 20210610
